FAERS Safety Report 4700756-4 (Version None)
Quarter: 2005Q2

REPORT INFORMATION
  Report Type: 
  Country: None (occurrence: None)
  Receive Date: 20050627
  Receipt Date: 20050614
  Transmission Date: 20051028
  Serious: No
  Sender: FDA-Public Use
  Company Number: 05H-062-0299741-00

PATIENT
  Age: 14 Year
  Sex: Male

DRUGS (1)
  1. HEPARIN SODIUM [Suspect]
     Indication: ANTICOAGULANT THERAPY
     Dosage: INTRAVENOUS
     Route: 042

REACTIONS (2)
  - AMAUROSIS FUGAX [None]
  - HEPARIN-INDUCED THROMBOCYTOPENIA [None]
